FAERS Safety Report 23249848 (Version 1)
Quarter: 2023Q4

REPORT INFORMATION
  Report Type: Report from Study
  Country: US (occurrence: US)
  Receive Date: 20231201
  Receipt Date: 20231201
  Transmission Date: 20240109
  Serious: Yes (Hospitalization)
  Sender: FDA-Public Use
  Company Number: US-BAUSCH-BL-2023-017826

PATIENT
  Age: 75 Year
  Sex: Female

DRUGS (1)
  1. XIFAXAN [Suspect]
     Active Substance: RIFAXIMIN
     Indication: Product used for unknown indication
     Route: 065

REACTIONS (1)
  - Hospitalisation [Recovered/Resolved]

NARRATIVE: CASE EVENT DATE: 20231101
